FAERS Safety Report 4438343-8 (Version None)
Quarter: 2004Q3

REPORT INFORMATION
  Report Type: 
  Country: None (occurrence: None)
  Receive Date: 20040831
  Receipt Date: 20040722
  Transmission Date: 20050211
  Serious: No
  Sender: FDA-Public Use
  Company Number: US-GLAXOSMITHKLINE-A0519390A

PATIENT
  Age: 44 Year
  Sex: Female
  Weight: 72.7 kg

DRUGS (1)
  1. WELLBUTRIN XL [Suspect]
     Dosage: 300MG PER DAY
     Route: 048
     Dates: start: 20031101

REACTIONS (1)
  - HYPERTENSION [None]
